FAERS Safety Report 14312073 (Version 1)
Quarter: 2017Q4

REPORT INFORMATION
  Report Type: Report from Study
  Country: None (occurrence: DE)
  Receive Date: 20171221
  Receipt Date: 20171221
  Transmission Date: 20180321
  Serious: Yes (Hospitalization, Other)
  Sender: FDA-Public Use
  Company Number: DE-ABBVIE-17K-062-2191032-00

PATIENT
  Age: 58 Year
  Sex: Female
  Weight: 132 kg

DRUGS (2)
  1. HUMIRA [Suspect]
     Active Substance: ADALIMUMAB
     Indication: PSORIATIC ARTHROPATHY
  2. HUMIRA [Suspect]
     Active Substance: ADALIMUMAB
     Indication: PSORIASIS
     Route: 058
     Dates: start: 20090824

REACTIONS (4)
  - Hysterosalpingo-oophorectomy [Unknown]
  - Uterine cancer [Recovered/Resolved]
  - Hepatic steatosis [Unknown]
  - Hernia [Unknown]

NARRATIVE: CASE EVENT DATE: 20171010
